FAERS Safety Report 5142341-9 (Version None)
Quarter: 2006Q4

REPORT INFORMATION
  Report Type: 
  Country: None (occurrence: None)
  Receive Date: 20061102
  Receipt Date: 20061009
  Transmission Date: 20070319
  Serious: Yes (Hospitalization)
  Sender: FDA-Public Use
  Company Number: US-GLAXOSMITHKLINE-A0622937A

PATIENT
  Age: 56 Year
  Sex: Female
  Weight: 118.2 kg

DRUGS (3)
  1. LAMICTAL [Suspect]
     Indication: BIPOLAR DISORDER
     Route: 048
     Dates: start: 20060907, end: 20060929
  2. LEXAPRO [Concomitant]
     Indication: DEPRESSION
     Dosage: 20MG PER DAY
     Route: 048
  3. WELLBUTRIN SR [Concomitant]
     Indication: DEPRESSION
     Dosage: 200MG TWICE PER DAY
     Route: 048

REACTIONS (5)
  - ORAL SOFT TISSUE DISORDER [None]
  - PYREXIA [None]
  - RASH PAPULAR [None]
  - TONGUE ERUPTION [None]
  - VIRAL INFECTION [None]
